FAERS Safety Report 5722848-3 (Version None)
Quarter: 2008Q2

REPORT INFORMATION
  Report Type: 
  Country: None (occurrence: None)
  Receive Date: 20080429
  Receipt Date: 20071226
  Transmission Date: 20081010
  Serious: No
  Sender: FDA-Public Use
  Company Number: US-ASTRAZENECA-2007UW28974

PATIENT
  Sex: Male

DRUGS (2)
  1. NEXIUM [Suspect]
     Indication: STOMACH DISCOMFORT
     Route: 048
     Dates: start: 20071219
  2. NEXIUM [Suspect]
     Indication: GASTROOESOPHAGEAL REFLUX DISEASE
     Route: 048
     Dates: start: 20071219

REACTIONS (6)
  - BURN OESOPHAGEAL [None]
  - DYSPHAGIA [None]
  - DYSPNOEA [None]
  - HICCUPS [None]
  - ILL-DEFINED DISORDER [None]
  - MUSCLE SPASMS [None]
